FAERS Safety Report 20474504 (Version 1)
Quarter: 2022Q1

REPORT INFORMATION
  Report Type: Report from Study
  Country: NO (occurrence: NO)
  Receive Date: 20220215
  Receipt Date: 20220215
  Transmission Date: 20220424
  Serious: Yes (Hospitalization, Other)
  Sender: FDA-Public Use
  Company Number: NO-TAKEDA-2022TUS009684

PATIENT
  Age: 70 Year
  Sex: Male

DRUGS (7)
  1. TEDUGLUTIDE [Suspect]
     Active Substance: TEDUGLUTIDE
     Indication: Short-bowel syndrome
     Dosage: 1.25 MILLIGRAM, QD
     Route: 065
     Dates: start: 20210930
  2. TEDUGLUTIDE [Suspect]
     Active Substance: TEDUGLUTIDE
     Indication: Short-bowel syndrome
     Dosage: 1.25 MILLIGRAM, QD
     Route: 065
     Dates: start: 20210930
  3. TEDUGLUTIDE [Suspect]
     Active Substance: TEDUGLUTIDE
     Indication: Short-bowel syndrome
     Dosage: 1.25 MILLIGRAM, QD
     Route: 065
     Dates: start: 20210930
  4. TEDUGLUTIDE [Suspect]
     Active Substance: TEDUGLUTIDE
     Indication: Short-bowel syndrome
     Dosage: 1.25 MILLIGRAM, QD
     Route: 065
     Dates: start: 20210930
  5. VANCOMYCIN [Concomitant]
     Active Substance: VANCOMYCIN
     Indication: Endocarditis
     Dosage: 0.75 GRAM, 2/WEEK
     Route: 042
     Dates: start: 20190201
  6. ZOPICLONE [Concomitant]
     Active Substance: ZOPICLONE
     Indication: Sleep disorder
     Dosage: 7.50 MILLIGRAM
     Route: 048
     Dates: start: 20181101
  7. RENILON [Concomitant]
     Indication: Short-bowel syndrome
     Dosage: 125 MILLILITER, BID
     Route: 048
     Dates: start: 20181101

REACTIONS (2)
  - Pneumonia [Recovered/Resolved]
  - Sepsis [Recovered/Resolved]

NARRATIVE: CASE EVENT DATE: 20211020
